FAERS Safety Report 6051985-1 (Version None)
Quarter: 2009Q1

REPORT INFORMATION
  Report Type: 
  Country: None (occurrence: None)
  Receive Date: 20090122
  Receipt Date: 20090122
  Transmission Date: 20090719
  Serious: Yes (Hospitalization)
  Sender: FDA-Public Use
  Company Number: None

PATIENT
  Age: 10 Year
  Sex: Female
  Weight: 17.2 kg

DRUGS (1)
  1. OPTIVAR [Suspect]
     Indication: SEASONAL ALLERGY
     Dosage: 1 GTT BOTH EYES ONLY ONE DOSE OPHTHALMIC
     Route: 047
     Dates: start: 20071115, end: 20071115

REACTIONS (17)
  - ACCIDENTAL DRUG INTAKE BY CHILD [None]
  - AGITATION [None]
  - ANTICHOLINERGIC SYNDROME [None]
  - ATAXIA [None]
  - CONFUSIONAL STATE [None]
  - DELIRIUM [None]
  - DISORIENTATION [None]
  - FLUSHING [None]
  - HYPERTHERMIA [None]
  - INSOMNIA [None]
  - MUCOSAL DRYNESS [None]
  - MYDRIASIS [None]
  - PYREXIA [None]
  - SPEECH DISORDER [None]
  - TACHYCARDIA [None]
  - THERAPEUTIC AGENT TOXICITY [None]
  - VISION BLURRED [None]
